FAERS Safety Report 26046279 (Version 1)
Quarter: 2025Q4

REPORT INFORMATION
  Report Type: Spontaneous
  Country: US (occurrence: None)
  Receive Date: 20251113
  Receipt Date: 20251113
  Transmission Date: 20260117
  Serious: Yes (Hospitalization)
  Sender: FDA-CTU
  Company Number: None

PATIENT
  Age: 65 Year
  Sex: Male
  Weight: 65.9 kg

DRUGS (4)
  1. ABIRATERONE [Suspect]
     Active Substance: ABIRATERONE
  2. ROSUVASTATIN [Suspect]
     Active Substance: ROSUVASTATIN
  3. ROSUVASTATIN [Concomitant]
     Active Substance: ROSUVASTATIN
     Dates: start: 20241125
  4. ABIRATERONE [Concomitant]
     Active Substance: ABIRATERONE
     Dates: start: 20250922

REACTIONS (3)
  - Rhabdomyolysis [None]
  - Acute kidney injury [None]
  - Drug interaction [None]

NARRATIVE: CASE EVENT DATE: 20251112
